FAERS Safety Report 13551107 (Version 2)
Quarter: 2017Q2

REPORT INFORMATION
  Report Type: Spontaneous
  Country: US (occurrence: US)
  Receive Date: 20170516
  Receipt Date: 20170602
  Transmission Date: 20170830
  Serious: Yes (Other)
  Sender: FDA-Public Use
  Company Number: US-JAZZ-2017-US-004174

PATIENT
  Age: 47 Year
  Sex: Female
  Weight: 59.3 kg

DRUGS (1)
  1. PRIALT [Suspect]
     Active Substance: ZICONOTIDE ACETATE
     Indication: PAIN
     Dosage: UNK ?G, QH
     Route: 037

REACTIONS (7)
  - Device issue [Recovered/Resolved]
  - Hypokinesia [Unknown]
  - Vomiting [Unknown]
  - Malaise [Unknown]
  - Autoimmune disorder [Unknown]
  - Bedridden [Unknown]
  - Psychotic disorder [Unknown]

NARRATIVE: CASE EVENT DATE: 20170225
